FAERS Safety Report 18884916 (Version 1)
Quarter: 2021Q1

REPORT INFORMATION
  Report Type: Spontaneous
  Country: TR (occurrence: TR)
  Receive Date: 20210212
  Receipt Date: 20210212
  Transmission Date: 20210420
  Serious: Yes (Hospitalization)
  Sender: FDA-Public Use
  Company Number: TR-TEVA-2021-TR-1879423

PATIENT
  Age: 63 Year
  Sex: Male

DRUGS (1)
  1. SILDENAFIL. [Suspect]
     Active Substance: SILDENAFIL
     Indication: ERECTILE DYSFUNCTION
     Dosage: RECEIVED AT LEAST THRICE A WEEK FOR MORE THAN 5 YEARS
     Route: 065

REACTIONS (2)
  - Cerebral venous sinus thrombosis [Recovered/Resolved]
  - Encephalopathy [Recovered/Resolved]
